FAERS Safety Report 9912988 (Version 1)
Quarter: 2014Q1

REPORT INFORMATION
  Report Type: Report from Study
  Country: CA (occurrence: CA)
  Receive Date: 20140220
  Receipt Date: 20140220
  Transmission Date: 20141002
  Serious: Yes (Hospitalization, Other)
  Sender: FDA-Public Use
  Company Number: CA-JNJFOC-20140209084

PATIENT
  Age: 49 Year
  Sex: Male

DRUGS (3)
  1. REMICADE [Suspect]
     Indication: CROHN^S DISEASE
     Dosage: 2ND DOSE
     Route: 042
  2. REMICADE [Suspect]
     Indication: CROHN^S DISEASE
     Dosage: 3RD DOSE
     Route: 042
  3. REMICADE [Suspect]
     Indication: CROHN^S DISEASE
     Dosage: 1ST DOSE
     Route: 042

REACTIONS (13)
  - Disability [Unknown]
  - Intestinal resection [Unknown]
  - Intestinal anastomosis [Unknown]
  - Cholecystectomy [Unknown]
  - Gastrointestinal disorder [Unknown]
  - Headache [Unknown]
  - Diarrhoea [Unknown]
  - Hypersomnia [Not Recovered/Not Resolved]
  - Dry skin [Unknown]
  - Abdominal distension [Not Recovered/Not Resolved]
  - Muscle spasms [Not Recovered/Not Resolved]
  - Flatulence [Not Recovered/Not Resolved]
  - Fatigue [Not Recovered/Not Resolved]
